FAERS Safety Report 14032451 (Version 2)
Quarter: 2019Q3

REPORT INFORMATION
  Report Type: Spontaneous
  Country: AU (occurrence: AU)
  Receive Date: 20171003
  Receipt Date: 20190923
  Transmission Date: 20191004
  Serious: No
  Sender: FDA-Public Use
  Company Number: AU-NOVEN PHARMACEUTICALS, INC.-AU2017000715

PATIENT

DRUGS (2)
  1. ESTRADIOL/NORETHISTERONE ACETATE [Suspect]
     Active Substance: ESTRADIOL\NORETHINDRONE ACETATE
     Dosage: UNK, UNKNOWN
     Route: 065
     Dates: start: 201805, end: 201805
  2. ESTRADIOL/NORETHISTERONE ACETATE [Suspect]
     Active Substance: ESTRADIOL\NORETHINDRONE ACETATE
     Indication: PRODUCT USED FOR UNKNOWN INDICATION
     Dosage: UNK, UNKNOWN
     Route: 065
     Dates: start: 2018, end: 2018

REACTIONS (3)
  - Flushing [Unknown]
  - Pain in extremity [Recovered/Resolved]
  - Breast pain [Recovered/Resolved]
